FAERS Safety Report 18567124 (Version 1)
Quarter: 2020Q4

REPORT INFORMATION
  Report Type: Report from Study
  Country: US (occurrence: US)
  Receive Date: 20201201
  Receipt Date: 20201201
  Transmission Date: 20210114
  Serious: Yes (Death, Life-Threatening, Hospitalization)
  Sender: FDA-Public Use
  Company Number: US-TEVA-2020-US-1853368

PATIENT
  Age: 68 Year
  Sex: Male
  Weight: 71 kg

DRUGS (6)
  1. VANCOMYCIN HYDROCHLORIDE. [Suspect]
     Active Substance: VANCOMYCIN HYDROCHLORIDE
     Indication: FEBRILE NEUTROPENIA
     Route: 042
     Dates: start: 20190201, end: 20190203
  2. DAUNORUBICIN [Suspect]
     Active Substance: DAUNORUBICIN
     Indication: ACUTE MYELOID LEUKAEMIA
     Dosage: 109.75 MILLIGRAM DAILY;
     Route: 041
     Dates: start: 20190117, end: 20190119
  3. VANCOMYCIN HYDROCHLORIDE. [Suspect]
     Active Substance: VANCOMYCIN HYDROCHLORIDE
     Route: 042
     Dates: start: 20190206, end: 20190207
  4. VANCOMYCIN HYDROCHLORIDE. [Suspect]
     Active Substance: VANCOMYCIN HYDROCHLORIDE
     Route: 042
     Dates: start: 20190129, end: 20190131
  5. CYTARABINE. [Suspect]
     Active Substance: CYTARABINE
     Indication: ACUTE MYELOID LEUKAEMIA
     Dosage: 184 MILLIGRAM DAILY; CONTINUOUS INFUSION
     Route: 041
     Dates: start: 20190117, end: 20190123
  6. VANCOMYCIN HYDROCHLORIDE. [Suspect]
     Active Substance: VANCOMYCIN HYDROCHLORIDE
     Route: 042
     Dates: start: 20190204, end: 20190205

REACTIONS (3)
  - Acute respiratory failure [Fatal]
  - Fungal sepsis [Fatal]
  - Pneumonia fungal [Not Recovered/Not Resolved]

NARRATIVE: CASE EVENT DATE: 20190205
